FAERS Safety Report 7586998-1 (Version None)
Quarter: 2011Q3

REPORT INFORMATION
  Report Type: 
  Country: None (occurrence: None)
  Receive Date: 20110701
  Receipt Date: 20110622
  Transmission Date: 20111222
  Serious: Yes (Other)
  Sender: FDA-Public Use
  Company Number: PHHY2011DE56157

PATIENT
  Age: 80 Year
  Sex: Female

DRUGS (2)
  1. ZOMETA [Suspect]
     Dosage: UNK
     Route: 042
  2. CHEMOTHERAPEUTICS NOS [Concomitant]

REACTIONS (2)
  - OSTEONECROSIS OF JAW [None]
  - DEVICE MATERIAL ISSUE [None]
